FAERS Safety Report 18051019 (Version 1)
Quarter: 2020Q3

REPORT INFORMATION
  Report Type: Spontaneous
  Country: US (occurrence: US)
  Receive Date: 20200721
  Receipt Date: 20200721
  Transmission Date: 20201103
  Serious: Yes (Hospitalization)
  Sender: FDA-Public Use
  Company Number: US-ASTRAZENECA-2020SE89400

PATIENT
  Age: 23 Year
  Sex: Male

DRUGS (7)
  1. INVEGA [Suspect]
     Active Substance: PALIPERIDONE
     Route: 065
     Dates: start: 201902
  2. RISPERDAL [Suspect]
     Active Substance: RISPERIDONE
     Route: 065
  3. ABILIFY MAINTENA [Suspect]
     Active Substance: ARIPIPRAZOLE
     Indication: SCHIZOPHRENIA
     Route: 065
  4. MARIJUANA [Concomitant]
     Active Substance: CANNABIS SATIVA SUBSP. INDICA TOP
  5. ABILIFY [Suspect]
     Active Substance: ARIPIPRAZOLE
     Indication: SCHIZOPHRENIA
     Route: 065
  6. SEROQUEL [Suspect]
     Active Substance: QUETIAPINE FUMARATE
     Route: 048
  7. COGENTIN [Suspect]
     Active Substance: BENZTROPINE MESYLATE
     Route: 065

REACTIONS (8)
  - Dyskinesia [Not Recovered/Not Resolved]
  - Confusional state [Unknown]
  - Hallucination, visual [Recovered/Resolved]
  - Daydreaming [Unknown]
  - Muscle twitching [Not Recovered/Not Resolved]
  - Memory impairment [Not Recovered/Not Resolved]
  - Insomnia [Unknown]
  - Hallucination, auditory [Not Recovered/Not Resolved]
